FAERS Safety Report 14114212 (Version 2)
Quarter: 2017Q4

REPORT INFORMATION
  Report Type: Spontaneous
  Country: JP (occurrence: JP)
  Receive Date: 20171023
  Receipt Date: 20171125
  Transmission Date: 20180321
  Serious: Yes (Other)
  Sender: FDA-Public Use
  Company Number: PHJP2017JP031674

PATIENT
  Age: 8 Year
  Sex: Male

DRUGS (1)
  1. SANDIMMUN INFUSION [Suspect]
     Active Substance: CYCLOSPORINE
     Indication: KAWASAKI^S DISEASE
     Dosage: UNK
     Route: 041

REACTIONS (2)
  - Product use in unapproved indication [Unknown]
  - Cytokine storm [Unknown]
